FAERS Safety Report 8397265-0 (Version None)
Quarter: 2012Q2

REPORT INFORMATION
  Report Type: 
  Country: None (occurrence: None)
  Receive Date: 20120531
  Receipt Date: 20120529
  Transmission Date: 20120825
  Serious: Yes (Death, Hospitalization)
  Sender: FDA-Public Use
  Company Number: DE-AMGEN-DEUSP2012020977

PATIENT
  Sex: Male

DRUGS (2)
  1. DICLOFENAC [Suspect]
     Indication: PAIN
  2. PROLIA [Suspect]
     Indication: OSTEOPOROSIS
     Dosage: UNK, Q2WK

REACTIONS (4)
  - DEATH [None]
  - BLOOD TEST ABNORMAL [None]
  - DIALYSIS [None]
  - INCORRECT DRUG ADMINISTRATION DURATION [None]
